FAERS Safety Report 16816724 (Version 1)
Quarter: 2019Q3

REPORT INFORMATION
  Report Type: Spontaneous
  Country: US (occurrence: US)
  Receive Date: 20190917
  Receipt Date: 20190917
  Transmission Date: 20191005
  Serious: No
  Sender: FDA-Public Use
  Company Number: US-ELI_LILLY_AND_COMPANY-US201909006660

PATIENT
  Sex: Female

DRUGS (1)
  1. HUMALOG [Suspect]
     Active Substance: INSULIN LISPRO
     Indication: PRODUCT USED FOR UNKNOWN INDICATION
     Dosage: 10 U, UNKNOWN (BEFORE EACH MEAL)
     Route: 065

REACTIONS (4)
  - Memory impairment [Unknown]
  - Ill-defined disorder [Recovering/Resolving]
  - Confusional state [Recovering/Resolving]
  - Visual impairment [Not Recovered/Not Resolved]
